FAERS Safety Report 4885885-7 (Version None)
Quarter: 2006Q1

REPORT INFORMATION
  Report Type: 
  Country: None (occurrence: None)
  Receive Date: 20060117
  Receipt Date: 20060104
  Transmission Date: 20060701
  Serious: Yes (Other)
  Sender: FDA-Public Use
  Company Number: 2006004910

PATIENT
  Age: 28 Year
  Sex: Female
  Weight: 58 kg

DRUGS (2)
  1. ZOLOFT [Suspect]
     Indication: LATENT TETANY
     Dosage: 50 MG (50 MG, 1 IN 1 D),
     Dates: start: 20051001, end: 20051229
  2. DESOGESTREL/ETHINYLESTRADIOL (DESOGESTREL, ETHINYLESTRADIOL) [Concomitant]

REACTIONS (5)
  - ANOREXIA [None]
  - DEHYDRATION [None]
  - DIARRHOEA [None]
  - LUNG DISORDER [None]
  - WEIGHT DECREASED [None]
